FAERS Safety Report 5022372-X (Version None)
Quarter: 2006Q2

REPORT INFORMATION
  Report Type: 
  Country: None (occurrence: None)
  Receive Date: 20060605
  Receipt Date: 20060530
  Transmission Date: 20061013
  Serious: Yes (Other)
  Sender: FDA-Public Use
  Company Number: 200610646BNE

PATIENT
  Age: 63 Year
  Sex: Male

DRUGS (3)
  1. ASPIRIN [Suspect]
  2. CRESTOR [Suspect]
     Dosage: ORAL
     Route: 048
     Dates: start: 20040317, end: 20041116
  3. OMEPRAZOLE [Suspect]
     Dates: start: 20041101

REACTIONS (4)
  - ABDOMINAL DISTENSION [None]
  - DIARRHOEA [None]
  - HYDRONEPHROSIS [None]
  - RETROPERITONEAL FIBROSIS [None]
